FAERS Safety Report 15342424 (Version 2)
Quarter: 2018Q3

REPORT INFORMATION
  Report Type: Spontaneous
  Country: PL (occurrence: PL)
  Receive Date: 20180902
  Receipt Date: 20180905
  Transmission Date: 20181010
  Serious: Yes (Hospitalization, Other)
  Sender: FDA-Public Use
  Company Number: PHHY2018PL086569

PATIENT
  Age: 63 Year
  Sex: Male

DRUGS (2)
  1. PREDNISONE. [Concomitant]
     Active Substance: PREDNISONE
     Indication: IMMUNOSUPPRESSANT DRUG THERAPY
     Dosage: 1 OT, QD
     Route: 065
     Dates: start: 20160919
  2. TACROLIMUS. [Suspect]
     Active Substance: TACROLIMUS
     Indication: RENAL TRANSPLANT
     Dosage: 1.5 MG, QD
     Route: 065
     Dates: start: 20170810, end: 20170927

REACTIONS (6)
  - Urinary tract infection bacterial [Recovered/Resolved]
  - Pneumonia [Recovered/Resolved]
  - Postoperative wound infection [Recovered/Resolved]
  - Colon cancer [Recovered/Resolved]
  - Urinary tract infection [Recovered/Resolved]
  - Urinary tract infection bacterial [Recovered/Resolved]

NARRATIVE: CASE EVENT DATE: 20180408
